FAERS Safety Report 20132613 (Version 1)
Quarter: 2021Q4

REPORT INFORMATION
  Report Type: Spontaneous
  Country: US (occurrence: US)
  Receive Date: 20211130
  Receipt Date: 20211130
  Transmission Date: 20220303
  Serious: Yes (Hospitalization)
  Sender: FDA-Public Use
  Company Number: US-NOVARTISPH-NVSC2021US268644

PATIENT
  Age: 76 Year
  Sex: Female

DRUGS (2)
  1. RANITIDINE [Suspect]
     Active Substance: RANITIDINE
     Indication: Impaired gastric emptying
     Dosage: 300 MG, QD
     Route: 048
     Dates: start: 200901, end: 201901
  2. RANITIDINE [Suspect]
     Active Substance: RANITIDINE
     Indication: Impaired gastric emptying
     Dosage: 300 MG, QD
     Route: 048
     Dates: start: 200901, end: 201901

REACTIONS (2)
  - Lung neoplasm malignant [Recovering/Resolving]
  - Product use in unapproved indication [Unknown]

NARRATIVE: CASE EVENT DATE: 20190201
